FAERS Safety Report 4809674-4 (Version None)
Quarter: 2005Q4

REPORT INFORMATION
  Report Type: 
  Country: None (occurrence: None)
  Receive Date: 20051021
  Receipt Date: 20040602
  Transmission Date: 20060501
  Serious: No
  Sender: FDA-Public Use
  Company Number: USA040669077

PATIENT
  Age: 37 Year
  Sex: Male

DRUGS (2)
  1. ZYPREXA [Suspect]
     Indication: SCHIZOPHRENIA, PARANOID TYPE
     Dosage: 20 MG
     Dates: start: 20040101
  2. STELAZINE [Concomitant]

REACTIONS (1)
  - T-LYMPHOCYTE COUNT DECREASED [None]
